FAERS Safety Report 18316051 (Version 1)
Quarter: 2020Q3

REPORT INFORMATION
  Report Type: Spontaneous
  Country: DE (occurrence: DE)
  Receive Date: 20200927
  Receipt Date: 20200927
  Transmission Date: 20201103
  Serious: Yes (Hospitalization)
  Sender: FDA-Public Use
  Company Number: DE-TEVA-2020-DE-1831423

PATIENT
  Age: 76 Year
  Sex: Female
  Weight: 62 kg

DRUGS (9)
  1. DIHYDROCODEINE [Concomitant]
     Active Substance: DIHYDROCODEINE
     Dosage: 10 GTT DAILY; 0?0?0?1,
     Route: 048
  2. COLECALCIFEROL [Concomitant]
     Active Substance: CHOLECALCIFEROL
     Dosage: 1000 IU (INTERNATIONAL UNIT) DAILY; 1?0?0?0
     Route: 048
  3. METOPROLOL. [Concomitant]
     Active Substance: METOPROLOL
     Dosage: 190 MILLIGRAM DAILY; 1?0?1?0,
     Route: 048
  4. FUROSEMID [Concomitant]
     Active Substance: FUROSEMIDE
     Dosage: 40 MILLIGRAM DAILY; 1?0?0?0
     Route: 048
  5. CANDESARTAN. [Concomitant]
     Active Substance: CANDESARTAN
     Dosage: 16 MILLIGRAM DAILY; 1?0?0?0
     Route: 048
  6. ATORVASTATIN [Concomitant]
     Active Substance: ATORVASTATIN
     Dosage: 40 MILLIGRAM DAILY; 0?0?1?0,
     Route: 048
  7. METFORMIN [Concomitant]
     Active Substance: METFORMIN HYDROCHLORIDE
     Dosage: 1000 MILLIGRAM DAILY; 1?0?1?0
     Route: 048
  8. AMIODARON [Suspect]
     Active Substance: AMIODARONE
     Dosage: NK MG
     Route: 048
     Dates: end: 20200212
  9. DABIGATRAN [Concomitant]
     Active Substance: DABIGATRAN
     Dosage: 300 MILLIGRAM DAILY; 1?0?1?0
     Route: 048

REACTIONS (4)
  - Dyspnoea [Unknown]
  - Acute respiratory failure [Unknown]
  - Apnoea [Unknown]
  - Cough [Unknown]
